FAERS Safety Report 13976716 (Version 2)
Quarter: 2017Q4

REPORT INFORMATION
  Report Type: Spontaneous
  Country: US (occurrence: US)
  Receive Date: 20170915
  Receipt Date: 20171009
  Transmission Date: 20180321
  Serious: Yes (Hospitalization, Other)
  Sender: FDA-Public Use
  Company Number: US-MALLINCKRODT-T201703748

PATIENT
  Sex: Female
  Weight: 54 kg

DRUGS (3)
  1. H.P. ACTHAR [Suspect]
     Active Substance: CORTICOTROPIN
     Indication: RENAL DISORDER
     Dosage: TWICE WEEKLY
     Route: 065
  2. WARFARIN [Concomitant]
     Active Substance: WARFARIN
     Indication: DIABETES MELLITUS
     Route: 065
  3. NEURONTIN [Concomitant]
     Active Substance: GABAPENTIN
     Indication: NEURALGIA
     Dosage: 300 MG AS NEEDED
     Route: 065

REACTIONS (7)
  - Pulmonary mass [Unknown]
  - Pyrexia [Unknown]
  - Cerebrovascular accident [Unknown]
  - Herpes zoster [Unknown]
  - White blood cell count abnormal [Unknown]
  - Weight decreased [Unknown]
  - Infection [Unknown]
